FAERS Safety Report 20983041 (Version 1)
Quarter: 2022Q2

REPORT INFORMATION
  Report Type: Report from Study
  Country: US (occurrence: US)
  Receive Date: 20220620
  Receipt Date: 20220620
  Transmission Date: 20220720
  Serious: Yes (Hospitalization)
  Sender: FDA-Public Use
  Company Number: US-ALLERGAN-2219426US

PATIENT
  Sex: Male

DRUGS (2)
  1. DALBAVANCIN HYDROCHLORIDE [Suspect]
     Active Substance: DALBAVANCIN HYDROCHLORIDE
     Indication: Product used for unknown indication
     Dosage: 1500 MG
  2. HEROIN [Concomitant]
     Active Substance: DIAMORPHINE
     Indication: Product used for unknown indication

REACTIONS (5)
  - Endocarditis [Unknown]
  - Cardiac valve disease [Unknown]
  - Abscess limb [Unknown]
  - Urinary retention [Unknown]
  - Dysuria [Unknown]

NARRATIVE: CASE EVENT DATE: 20220414
